FAERS Safety Report 5671118-0 (Version None)
Quarter: 2008Q1

REPORT INFORMATION
  Report Type: 
  Country: None (occurrence: None)
  Receive Date: 20080318
  Receipt Date: 20080311
  Transmission Date: 20080703
  Serious: Yes (Other)
  Sender: FDA-Public Use
  Company Number: US-SANOFI-SYNTHELABO-A03200800974

PATIENT
  Sex: Female

DRUGS (2)
  1. PLAVIX [Suspect]
     Indication: STENT PLACEMENT
     Dosage: UNK
     Route: 048
     Dates: start: 20070201
  2. ASPIRIN [Concomitant]
     Indication: DRUG USE FOR UNKNOWN INDICATION
     Dosage: UNK
     Route: 065

REACTIONS (13)
  - ANAPHYLACTIC SHOCK [None]
  - BLOOD PRESSURE INCREASED [None]
  - CARDIAC FAILURE CONGESTIVE [None]
  - CEREBROVASCULAR ACCIDENT [None]
  - CLOSTRIDIAL INFECTION [None]
  - CONFUSIONAL STATE [None]
  - CONTUSION [None]
  - DIZZINESS [None]
  - FATIGUE [None]
  - IMMUNE SYSTEM DISORDER [None]
  - MALAISE [None]
  - METASTATIC BRONCHIAL CARCINOMA [None]
  - RENAL FAILURE [None]
